FAERS Safety Report 7914346-3 (Version None)
Quarter: 2011Q4

REPORT INFORMATION
  Report Type: 
  Country: None (occurrence: None)
  Receive Date: 20111115
  Receipt Date: 20111103
  Transmission Date: 20120403
  Serious: Yes (Hospitalization, Other)
  Sender: FDA-Public Use
  Company Number: US-JNJFOC-20111101621

PATIENT
  Sex: Male
  Weight: 37.2 kg

DRUGS (1)
  1. REMICADE [Suspect]
     Indication: CROHN'S DISEASE
     Route: 042
     Dates: start: 20111006

REACTIONS (3)
  - SMALL INTESTINAL RESECTION [None]
  - SMALL INTESTINAL OBSTRUCTION [None]
  - SWELLING [None]
